FAERS Safety Report 15242859 (Version 1)
Quarter: 2018Q3

REPORT INFORMATION
  Report Type: Spontaneous
  Country: US (occurrence: US)
  Receive Date: 20180712
  Receipt Date: 20180712
  Transmission Date: 20181010
  Serious: Yes (Other)
  Sender: FDA-Public Use
  Company Number: None

PATIENT
  Age: 32 Year
  Sex: Female

DRUGS (1)
  1. BUPRENORPHINE AND NALOXONE [Suspect]
     Active Substance: BUPRENORPHINE\NALOXONE
     Indication: DRUG DEPENDENCE
     Route: 060
     Dates: start: 20180627, end: 20180702

REACTIONS (5)
  - Product substitution issue [None]
  - Product solubility abnormal [None]
  - Withdrawal syndrome [None]
  - Oral mucosal blistering [None]
  - Stomatitis [None]

NARRATIVE: CASE EVENT DATE: 20180627
